FAERS Safety Report 5809555-3 (Version None)
Quarter: 2008Q3

REPORT INFORMATION
  Report Type: 
  Country: None (occurrence: None)
  Receive Date: 20080715
  Receipt Date: 20080709
  Transmission Date: 20090109
  Serious: Yes (Life-Threatening, Other)
  Sender: FDA-Public Use
  Company Number: GB-WYE-G01841608

PATIENT
  Age: 39 Year
  Sex: Female
  Weight: 60 kg

DRUGS (3)
  1. VENLAFAXINE HYDROCHLORIDE [Suspect]
     Indication: DEPRESSION
     Dosage: UNKNOWN DOSE, ONCE A DAY
     Route: 048
     Dates: start: 20080409, end: 20080616
  2. LOESTRIN 1.5/30 [Concomitant]
     Dosage: UNKNOWN
  3. FLOXACILLIN SODIUM [Concomitant]
     Indication: CELLULITIS
     Dosage: UNKNOWN
     Route: 048
     Dates: start: 20080609

REACTIONS (4)
  - CONTUSION [None]
  - HAEMOGLOBIN DECREASED [None]
  - MENORRHAGIA [None]
  - PLATELET AGGREGATION INHIBITION [None]
